FAERS Safety Report 22704215 (Version 2)
Quarter: 2023Q4

REPORT INFORMATION
  Report Type: Report from Study
  Country: US (occurrence: US)
  Receive Date: 20230714
  Receipt Date: 20231102
  Transmission Date: 20240110
  Serious: Yes (Hospitalization, Other)
  Sender: FDA-Public Use
  Company Number: US-ABBVIE-5325903

PATIENT
  Sex: Female

DRUGS (2)
  1. RINVOQ [Suspect]
     Active Substance: UPADACITINIB
     Indication: Rheumatoid arthritis
     Dosage: FORM STRENGTH: 15 MILLIGRAM?EXENDED RELEASE
     Route: 048
     Dates: start: 2023, end: 2023
  2. RINVOQ [Suspect]
     Active Substance: UPADACITINIB
     Indication: Rheumatoid arthritis
     Dosage: FORM STRENGTH: 15 MILLIGRAM?EXENDED RELEASE
     Route: 048
     Dates: start: 20230910

REACTIONS (3)
  - Ulcer haemorrhage [Recovered/Resolved]
  - Loss of consciousness [Recovered/Resolved]
  - Spinal nerve stimulator implantation [Unknown]

NARRATIVE: CASE EVENT DATE: 20230101
